FAERS Safety Report 10037639 (Version 1)
Quarter: 2014Q1

REPORT INFORMATION
  Report Type: Spontaneous
  Country: US (occurrence: None)
  Receive Date: 20140325
  Receipt Date: 20140325
  Transmission Date: 20141002
  Serious: Yes (Hospitalization)
  Sender: FDA-Public Use
  Company Number: None

PATIENT
  Age: 69 Year
  Sex: Male
  Weight: 84 kg

DRUGS (24)
  1. HYDROXYCHLOROQUINE [Suspect]
     Indication: PLASMA CELL MYELOMA
     Route: 048
     Dates: start: 20140211, end: 20140324
  2. SIROLIMUS [Suspect]
     Indication: PLASMA CELL MYELOMA
     Dosage: 12 MG AND 4 MG DAY 2 TO DAY 4 ORAL
     Route: 048
     Dates: start: 20140305, end: 20140310
  3. ACYCLOVIR [Concomitant]
  4. ASPIRIN [Concomitant]
  5. CALCIUM-VITAMIN D [Concomitant]
  6. CHOLECALICIFEROL [Concomitant]
  7. DIGOXIN [Concomitant]
  8. FLUCONAZOLE [Concomitant]
  9. FOLIC ACID [Concomitant]
  10. LEVOFLOXACIN [Concomitant]
  11. LIDOCAINE-PRILOCAINE EMLA [Concomitant]
  12. LISINOPRIL [Concomitant]
  13. LOPERAMIDE [Concomitant]
  14. MULTIPLE VITAMIN [Concomitant]
  15. OMEPRAZOLE [Concomitant]
  16. ONDANSETRON [Concomitant]
  17. OXYCODONE [Concomitant]
  18. TAMSULOSIN [Concomitant]
  19. TRAVOPROST [Concomitant]
  20. BENZALKONIUM [Concomitant]
  21. ZOLEDRONIC ACID [Concomitant]
  22. VANCOMYCIN [Concomitant]
  23. MEROPENEM [Concomitant]
  24. CEFEPIME [Concomitant]

REACTIONS (3)
  - Febrile neutropenia [None]
  - Catheter site erythema [None]
  - Staphylococcus test positive [None]
